FAERS Safety Report 21847492 (Version 2)
Quarter: 2023Q1

REPORT INFORMATION
  Report Type: Report from Study
  Country: US (occurrence: US)
  Receive Date: 20230111
  Receipt Date: 20230208
  Transmission Date: 20230417
  Serious: Yes (Hospitalization)
  Sender: FDA-Public Use
  Company Number: US-ABBVIE-4263467

PATIENT
  Age: 58 Year
  Sex: Female

DRUGS (2)
  1. HUMIRA [Suspect]
     Active Substance: ADALIMUMAB
     Indication: Rheumatoid arthritis
     Dosage: CITRATE FREE?OFF HUMIRA FOR 2 CYCLES
     Route: 058
  2. HUMIRA [Suspect]
     Active Substance: ADALIMUMAB
     Indication: Ankylosing spondylitis
     Dosage: RESUMED
     Route: 058

REACTIONS (4)
  - Pneumonia [Recovered/Resolved]
  - Arthralgia [Recovering/Resolving]
  - Lung disorder [Unknown]
  - Illness [Unknown]

NARRATIVE: CASE EVENT DATE: 20230101
